FAERS Safety Report 5403002-1 (Version None)
Quarter: 2007Q3

REPORT INFORMATION
  Report Type: 
  Country: None (occurrence: None)
  Receive Date: 20070713
  Receipt Date: 20060626
  Transmission Date: 20080115
  Serious: Yes (Other)
  Sender: FDA-Public Use
  Company Number: 453680

PATIENT
  Age: 75 Year
  Sex: Female
  Weight: 49.9 kg

DRUGS (5)
  1. BONIVA [Suspect]
     Indication: OSTEOPOROSIS
     Dosage: 150 MG ORAL
     Route: 048
     Dates: start: 20060531, end: 20060717
  2. ZOCOR [Concomitant]
  3. ZANTAC [Concomitant]
  4. LOPRESSOR [Concomitant]
  5. ASPIRIN [Concomitant]

REACTIONS (4)
  - ABDOMINAL DISCOMFORT [None]
  - INFECTION [None]
  - INFLUENZA LIKE ILLNESS [None]
  - IRRITABLE BOWEL SYNDROME [None]
